FAERS Safety Report 18299756 (Version 1)
Quarter: 2020Q3

REPORT INFORMATION
  Report Type: Spontaneous
  Country: US (occurrence: US)
  Receive Date: 20200922
  Receipt Date: 20200922
  Transmission Date: 20201103
  Serious: No
  Sender: FDA-Public Use
  Company Number: None

PATIENT
  Sex: Male
  Weight: 60.78 kg

DRUGS (15)
  1. TYLENOL [Concomitant]
     Active Substance: ACETAMINOPHEN
  2. PROTONIX [Concomitant]
     Active Substance: PANTOPRAZOLE SODIUM
  3. AMMONIUM LACTATE. [Concomitant]
     Active Substance: AMMONIUM LACTATE
  4. FERROUS SULFATE. [Concomitant]
     Active Substance: FERROUS SULFATE
  5. MIRTAZAPINE. [Concomitant]
     Active Substance: MIRTAZAPINE
  6. BACLOFEN. [Concomitant]
     Active Substance: BACLOFEN
  7. MULTI VITAMIN DAILY [Concomitant]
  8. SUTENT [Suspect]
     Active Substance: SUNITINIB MALATE
     Indication: RENAL CANCER
     Route: 048
     Dates: start: 20200828, end: 20200922
  9. ATORVASTATIN CALCIUM. [Concomitant]
     Active Substance: ATORVASTATIN CALCIUM
  10. RISPERIDONE. [Concomitant]
     Active Substance: RISPERIDONE
  11. SENNA [Concomitant]
     Active Substance: SENNA LEAF\SENNOSIDES\SENNOSIDES A AND B
  12. ZOLOFT [Concomitant]
     Active Substance: SERTRALINE HYDROCHLORIDE
  13. DONEPEZIL. [Concomitant]
     Active Substance: DONEPEZIL
  14. KETOCONAZOLE. [Concomitant]
     Active Substance: KETOCONAZOLE
  15. BENZTROPINE. [Concomitant]
     Active Substance: BENZTROPINE

REACTIONS (1)
  - Hospice care [None]
